FAERS Safety Report 5721490-8 (Version None)
Quarter: 2008Q2

REPORT INFORMATION
  Report Type: 
  Country: None (occurrence: None)
  Receive Date: 20080428
  Receipt Date: 20080428
  Transmission Date: 20081010
  Serious: No
  Sender: FDA-Public Use
  Company Number: None

PATIENT
  Age: 75 Year
  Sex: Female
  Weight: 72.5755 kg

DRUGS (1)
  1. LEVAQUIN [Suspect]
     Indication: UPPER RESPIRATORY TRACT INFECTION

REACTIONS (5)
  - ASTHENIA [None]
  - FATIGUE [None]
  - SOMNOLENCE [None]
  - TREMOR [None]
  - VAGINAL HAEMORRHAGE [None]
